FAERS Safety Report 9913906 (Version 2)
Quarter: 2014Q2

REPORT INFORMATION
  Report Type: Spontaneous
  Country: US (occurrence: US)
  Receive Date: 20140220
  Receipt Date: 20140624
  Transmission Date: 20141212
  Serious: Yes (Other)
  Sender: FDA-Public Use
  Company Number: US-BAYER-2014-025021

PATIENT
  Age: 31 Year
  Sex: Female
  Weight: 72.56 kg

DRUGS (3)
  1. MIRENA [Suspect]
     Indication: CONTRACEPTION
     Dosage: 20 MCG/24HR, CONT
     Route: 015
     Dates: start: 20131108, end: 20131109
  2. PRENATAL VITAMINS [Concomitant]
     Indication: PREGNANCY
     Dosage: 1 DF, QD
     Route: 048
  3. PRENATAL VITAMINS [Concomitant]
     Indication: POSTPARTUM STATE

REACTIONS (9)
  - Pelvic inflammatory disease [Recovered/Resolved]
  - Endometritis [None]
  - Pyrexia [Recovered/Resolved]
  - Procedural dizziness [Recovered/Resolved]
  - Abdominal pain lower [Recovered/Resolved]
  - Genital haemorrhage [Recovered/Resolved]
  - Vaginal discharge [Recovered/Resolved]
  - Dysuria [Recovered/Resolved]
  - Procedural pain [Recovered/Resolved]
